FAERS Safety Report 13757264 (Version 1)
Quarter: 2017Q3

REPORT INFORMATION
  Report Type: Spontaneous
  Country: SI (occurrence: SI)
  Receive Date: 20170716
  Receipt Date: 20170716
  Transmission Date: 20171127
  Serious: Yes (Other)
  Sender: FDA-Public Use
  Company Number: SI-AMGEN-SVNSP2017105699

PATIENT

DRUGS (1)
  1. PROLIA [Suspect]
     Active Substance: DENOSUMAB
     Indication: PRODUCT USED FOR UNKNOWN INDICATION
     Dosage: UNK
     Route: 065

REACTIONS (34)
  - Musculoskeletal stiffness [Unknown]
  - Mouth ulceration [Unknown]
  - Wound secretion [Unknown]
  - Wound complication [Unknown]
  - Gingival swelling [Recovered/Resolved]
  - Myalgia [Unknown]
  - Sciatica [Unknown]
  - Wrist fracture [Unknown]
  - Skin exfoliation [Unknown]
  - Tendon pain [Unknown]
  - Dyspepsia [Unknown]
  - Onychoclasis [Unknown]
  - Hyperhidrosis [Unknown]
  - Hot flush [Unknown]
  - Toothache [Recovered/Resolved]
  - Pain in extremity [Recovering/Resolving]
  - Headache [Recovered/Resolved]
  - Insomnia [Recovered/Resolved]
  - Dry mouth [Unknown]
  - Dry skin [Unknown]
  - Initial insomnia [Not Recovered/Not Resolved]
  - Poor quality sleep [Not Recovered/Not Resolved]
  - Apathy [Unknown]
  - Abnormal faeces [Unknown]
  - Temporomandibular joint syndrome [Recovered/Resolved]
  - Impaired work ability [Unknown]
  - Hair texture abnormal [Unknown]
  - Fatigue [Unknown]
  - Faecal volume decreased [Unknown]
  - Alopecia [Not Recovered/Not Resolved]
  - Asthenia [Not Recovered/Not Resolved]
  - Arthralgia [Unknown]
  - Urine odour abnormal [Recovered/Resolved]
  - Dyschezia [Not Recovered/Not Resolved]

NARRATIVE: CASE EVENT DATE: 201609
